FAERS Safety Report 9158428 (Version 2)
Quarter: 2013Q3

REPORT INFORMATION
  Report Type: Report from Study
  Country: DE (occurrence: DE)
  Receive Date: 20130312
  Receipt Date: 20130808
  Transmission Date: 20140515
  Serious: Yes (Death, Hospitalization, Other)
  Sender: FDA-Public Use
  Company Number: DE-BRISTOL-MYERS SQUIBB COMPANY-17431560

PATIENT
  Age: 75 Year
  Sex: Male

DRUGS (3)
  1. ABATACEPT [Suspect]
     Indication: RHEUMATOID ARTHRITIS
     Dates: start: 200707, end: 201204
  2. METHOTREXATE [Suspect]
     Indication: RHEUMATOID ARTHRITIS
     Dates: start: 1992
  3. PREDNISOLONE [Concomitant]
     Indication: RHEUMATOID ARTHRITIS
     Dates: start: 1992

REACTIONS (8)
  - Neutropenic sepsis [Fatal]
  - Septic shock [Fatal]
  - Multi-organ failure [Fatal]
  - Pneumonia [Fatal]
  - Systemic inflammatory response syndrome [Unknown]
  - Gastroenteritis [Unknown]
  - Acute myeloid leukaemia [Unknown]
  - Concussion [Unknown]
